FAERS Safety Report 4820395-4 (Version None)
Quarter: 2005Q4

REPORT INFORMATION
  Report Type: 
  Country: None (occurrence: None)
  Receive Date: 20051104
  Receipt Date: 20051031
  Transmission Date: 20060501
  Serious: Yes (Death)
  Sender: FDA-Public Use
  Company Number: 2005GB02115

PATIENT
  Age: 74 Year
  Sex: Male

DRUGS (12)
  1. AMITRIPTYLINE HCL [Suspect]
     Route: 048
  2. TIOTROPIUM BROMIDE [Suspect]
     Route: 055
  3. CLARITHROMYCIN [Suspect]
     Route: 048
  4. MENTHOL [Suspect]
     Dosage: 5ML TO 1 PINT OF HOT WATER, INHALE VAPOUR QID
     Route: 055
  5. OXYGEN [Suspect]
     Route: 055
  6. ACETAMINOPHEN [Suspect]
     Route: 048
  7. PREDNISOLONE [Suspect]
     Route: 048
  8. SALBUTAMOL [Suspect]
     Route: 055
  9. SERETIDE [Suspect]
     Route: 055
  10. SUMATRIPTAN SUCCINATE [Suspect]
     Dosage: 20MG/0.1ML AS DIRECTED
     Route: 045
  11. VERAPAMIL [Suspect]
     Route: 048
  12. EUCALYPTUS GLOBULUS [Suspect]
     Dosage: 5ML TO 1 PINT OF HOT WATER, INHALE VAPOUR QID
     Route: 055

REACTIONS (2)
  - CHRONIC OBSTRUCTIVE PULMONARY DISEASE [None]
  - LOWER RESPIRATORY TRACT INFECTION [None]
